FAERS Safety Report 8535145-8 (Version None)
Quarter: 2012Q3

REPORT INFORMATION
  Report Type: 
  Country: None (occurrence: None)
  Receive Date: 20120724
  Receipt Date: 20120718
  Transmission Date: 20120928
  Serious: No
  Sender: FDA-Public Use
  Company Number: US-PFIZER INC-2012174813

PATIENT
  Sex: Female

DRUGS (3)
  1. LYRICA [Suspect]
     Dosage: 200 MG, DAILY
  2. LYRICA [Suspect]
     Dosage: 100 MG, DAILY
  3. LYRICA [Suspect]
     Dosage: UNK, DAILY

REACTIONS (6)
  - DIARRHOEA [None]
  - VOMITING [None]
  - WEIGHT DECREASED [None]
  - NAUSEA [None]
  - MALAISE [None]
  - DECREASED APPETITE [None]
